FAERS Safety Report 25771087 (Version 5)
Quarter: 2025Q3

REPORT INFORMATION
  Report Type: Report from Study
  Country: US (occurrence: US)
  Receive Date: 20250908
  Receipt Date: 20250930
  Transmission Date: 20251021
  Serious: No
  Sender: BOEHRINGER INGELHEIM
  Company Number: US-Komodo Health-a23aa000009yHDhAAM

PATIENT
  Age: 63 Year
  Sex: Female

DRUGS (2)
  1. HERNEXEOS [Suspect]
     Active Substance: ZONGERTINIB
     Indication: Non-small cell lung cancer
     Dates: start: 20250826
  2. HERNEXEOS [Suspect]
     Active Substance: ZONGERTINIB
     Indication: Bronchial carcinoma

REACTIONS (4)
  - Diarrhoea [Recovering/Resolving]
  - Rash [Recovering/Resolving]
  - Decreased appetite [Unknown]
  - Prescribed overdose [Unknown]

NARRATIVE: CASE EVENT DATE: 20250828
